FAERS Safety Report 4417777-1 (Version None)
Quarter: 2004Q2

REPORT INFORMATION
  Report Type: 
  Country: None (occurrence: None)
  Receive Date: 20040621
  Receipt Date: 20040415
  Transmission Date: 20050107
  Serious: No
  Sender: FDA-Public Use
  Company Number: PHEH2004US03882

PATIENT
  Age: 86 Year
  Sex: Male

DRUGS (12)
  1. ZOMETA [Suspect]
     Indication: PROSTATE CANCER
     Dosage: Q4-5 WEEKS, INTRAVENOUS
     Route: 042
     Dates: start: 20040101
  2. ZOLADEX [Suspect]
     Dates: start: 20040101
  3. CASODEX [Concomitant]
  4. DEMADEX [Concomitant]
  5. PLAVIX [Concomitant]
  6. PANTOPRAZOLE [Concomitant]
  7. TOPROL-XL [Concomitant]
  8. SIMVASTATIN [Concomitant]
  9. ASPIRIN [Concomitant]
  10. CITRUCEL [Concomitant]
  11. CALCIUM WITH VITAMIN D (CALCIUM SODIUM LACTATE) [Concomitant]
  12. VITAMIN B COMPLEX CAP [Concomitant]

REACTIONS (3)
  - MOUTH ULCERATION [None]
  - STOMATITIS [None]
  - TONGUE ULCERATION [None]
